FAERS Safety Report 18004455 (Version 1)
Quarter: 2020Q3

REPORT INFORMATION
  Report Type: Report from Study
  Country: JP (occurrence: JP)
  Receive Date: 20200710
  Receipt Date: 20200710
  Transmission Date: 20201103
  Serious: Yes (Other)
  Sender: FDA-Public Use
  Company Number: JP-ROCHE-2636829

PATIENT

DRUGS (1)
  1. RITUXIMAB. [Suspect]
     Active Substance: RITUXIMAB
     Indication: GRANULOMATOSIS WITH POLYANGIITIS
     Dosage: DOSE OF 375 MG PER SQUARE METER OF BODY?SURFACE AREA OR 500 MG PER BODY AT ONE COURSE
     Route: 065

REACTIONS (6)
  - Cardiac failure [Unknown]
  - Infection [Unknown]
  - Chondrocalcinosis pyrophosphate [Unknown]
  - Fracture [Unknown]
  - Spinal fracture [Unknown]
  - Gastrointestinal haemorrhage [Unknown]
